FAERS Safety Report 4416228-0 (Version None)
Quarter: 2004Q3

REPORT INFORMATION
  Report Type: 
  Country: None (occurrence: None)
  Receive Date: 20040803
  Receipt Date: 20040719
  Transmission Date: 20050211
  Serious: Yes (Hospitalization, Other)
  Sender: FDA-Public Use
  Company Number: USA-2004-0015416

PATIENT
  Age: 53 Year
  Sex: Female

DRUGS (9)
  1. OXYCONTIN [Suspect]
     Indication: PAIN
     Dosage: 20 MG, BID,
     Dates: start: 20031010, end: 20040508
  2. PERCOCET [Suspect]
     Dosage: MG
  3. TRAZODONE HCL [Concomitant]
  4. PROTONIX [Concomitant]
  5. NEURONTIN (GABPENTIN) [Concomitant]
  6. LANTUS [Concomitant]
  7. ACTOS [Concomitant]
  8. GLUCOPHAGE [Concomitant]
  9. GLUCOTROL XL [Concomitant]

REACTIONS (7)
  - ADJUSTMENT DISORDER [None]
  - AFFECTIVE DISORDER [None]
  - DRUG ABUSER [None]
  - DRUG DEPENDENCE [None]
  - DRUG WITHDRAWAL SYNDROME [None]
  - OVERDOSE [None]
  - POLYSUBSTANCE ABUSE [None]
